FAERS Safety Report 8448880-7 (Version None)
Quarter: 2012Q2

REPORT INFORMATION
  Report Type: 
  Country: None (occurrence: None)
  Receive Date: 20120619
  Receipt Date: 20120612
  Transmission Date: 20120825
  Serious: Yes (Hospitalization)
  Sender: FDA-Public Use
  Company Number: US-GLAXOSMITHKLINE-A0903033A

PATIENT
  Sex: Female
  Weight: 92.7 kg

DRUGS (9)
  1. AVANDIA [Suspect]
     Indication: DIABETES MELLITUS
     Dosage: 4MG PER DAY
     Route: 048
     Dates: start: 19990601, end: 19990801
  2. CARDIZEM [Concomitant]
  3. LIPITOR [Concomitant]
  4. GLUCOPHAGE [Concomitant]
  5. TENORMIN [Concomitant]
  6. IMDUR [Concomitant]
  7. PRILOSEC [Concomitant]
  8. ASPIRIN [Concomitant]
  9. MICRONASE [Concomitant]

REACTIONS (3)
  - ANGINA UNSTABLE [None]
  - ISCHAEMIA [None]
  - CARDIAC FAILURE CONGESTIVE [None]
